FAERS Safety Report 21556765 (Version 1)
Quarter: 2022Q4

REPORT INFORMATION
  Report Type: Spontaneous
  Country: US (occurrence: None)
  Receive Date: 20221104
  Receipt Date: 20221104
  Transmission Date: 20230113
  Serious: Yes (Life-Threatening, Hospitalization, Disabling)
  Sender: FDA-Public Use
  Company Number: None

PATIENT
  Age: 58 Year
  Sex: Female
  Weight: 97.8 kg

DRUGS (1)
  1. RIVAROXABAN [Suspect]
     Active Substance: RIVAROXABAN
     Indication: Atrial fibrillation
     Dosage: FREQUENCY : DAILY;?
     Route: 048
     Dates: start: 20210801, end: 20220912

REACTIONS (9)
  - Subarachnoid haemorrhage [None]
  - Intracranial aneurysm [None]
  - Respiratory distress [None]
  - Ileus [None]
  - Therapy interrupted [None]
  - Drug screen positive [None]
  - Drug abuse [None]
  - Procedure aborted [None]
  - Treatment noncompliance [None]
